FAERS Safety Report 7914208-1 (Version None)
Quarter: 2011Q4

REPORT INFORMATION
  Report Type: 
  Country: None (occurrence: None)
  Receive Date: 20111114
  Receipt Date: 20111114
  Transmission Date: 20120403
  Serious: Yes (Hospitalization)
  Sender: FDA-Public Use
  Company Number: None

PATIENT
  Age: 46 Year
  Sex: Female
  Weight: 65.9 kg

DRUGS (1)
  1. DULOXETIME HYDROCHLORIDE [Suspect]
     Indication: DEPRESSION
     Dosage: 60 MG EVERY DAY PO
     Route: 048
     Dates: start: 20110410, end: 20111022

REACTIONS (6)
  - HALLUCINATION [None]
  - HEADACHE [None]
  - MENTAL STATUS CHANGES [None]
  - NIGHTMARE [None]
  - INSOMNIA [None]
  - CONFUSIONAL STATE [None]
